FAERS Safety Report 4492125-X (Version None)
Quarter: 2004Q4

REPORT INFORMATION
  Report Type: 
  Country: None (occurrence: None)
  Receive Date: 20041101
  Receipt Date: 20040928
  Transmission Date: 20050328
  Serious: Yes (Hospitalization, Other)
  Sender: FDA-Public Use
  Company Number: 2004236166US

PATIENT
  Age: 52 Year
  Sex: Male
  Weight: 70.3 kg

DRUGS (3)
  1. BEXTRA [Suspect]
     Indication: ARTHRALGIA
     Dosage: SEE IMAGE
     Route: 048
     Dates: start: 20040701, end: 20040901
  2. BEXTRA [Suspect]
     Indication: ARTHRALGIA
     Dosage: SEE IMAGE
     Route: 048
     Dates: start: 20040901
  3. PERCOCET (OXYCODONE HYDROCHLORIDE, OXYCODONE TEREPHTHALATE) [Concomitant]

REACTIONS (7)
  - BACK PAIN [None]
  - CHEST PAIN [None]
  - CHEST WALL PAIN [None]
  - CONVULSION [None]
  - LOSS OF CONSCIOUSNESS [None]
  - MONOPLEGIA [None]
  - SENSORIMOTOR DISORDER [None]
